FAERS Safety Report 7826042-1 (Version None)
Quarter: 2011Q4

REPORT INFORMATION
  Report Type: 
  Country: None (occurrence: None)
  Receive Date: 20111019
  Receipt Date: 20111010
  Transmission Date: 20120403
  Serious: Yes (Other)
  Sender: FDA-Public Use
  Company Number: US-ASTRAZENECA-2011SE60729

PATIENT
  Age: 53 Year
  Sex: Female
  Weight: 97.5 kg

DRUGS (31)
  1. ATENOLOL [Suspect]
     Route: 065
  2. LYRICA [Suspect]
     Route: 048
     Dates: start: 20100101, end: 20100101
  3. LYRICA [Suspect]
     Route: 065
     Dates: start: 20100101, end: 20100101
  4. SOMA [Concomitant]
  5. POTASSIUM [Concomitant]
  6. LYRICA [Suspect]
     Route: 065
     Dates: start: 20100101, end: 20100101
  7. PERCOCET [Concomitant]
  8. LYRICA [Suspect]
     Indication: FIBROMYALGIA
     Route: 048
  9. LYRICA [Suspect]
     Route: 048
     Dates: start: 20100101, end: 20100101
  10. LYRICA [Suspect]
     Route: 065
     Dates: start: 20100101, end: 20100101
  11. LYRICA [Suspect]
     Route: 065
     Dates: start: 20100801, end: 20100829
  12. CYMBALTA [Concomitant]
  13. LYRICA [Suspect]
     Route: 065
     Dates: start: 20100101, end: 20100101
  14. LYRICA [Suspect]
     Route: 065
     Dates: start: 20100101, end: 20100101
  15. LYRICA [Suspect]
     Route: 065
     Dates: start: 20100801, end: 20100829
  16. METFORMIN HCL [Concomitant]
     Indication: DIABETES MELLITUS
  17. HYDROCHLOROTHIAZIDE [Concomitant]
  18. LISINOPRIL [Suspect]
     Route: 048
  19. MONOPRIL [Suspect]
     Route: 065
  20. LYRICA [Suspect]
     Route: 048
     Dates: start: 20100101, end: 20100101
  21. LYRICA [Suspect]
     Indication: BACK DISORDER
     Route: 048
  22. LYRICA [Suspect]
     Indication: NEURALGIA
     Route: 048
  23. LYRICA [Suspect]
     Route: 048
     Dates: start: 20100101, end: 20100101
  24. LYRICA [Suspect]
     Route: 065
     Dates: start: 20100101, end: 20100101
  25. ATACAND [Suspect]
     Route: 048
  26. LYRICA [Suspect]
     Indication: NEUROPATHY PERIPHERAL
     Route: 048
  27. LYRICA [Suspect]
     Route: 065
     Dates: start: 20100101, end: 20100101
  28. LYRICA [Suspect]
     Route: 065
     Dates: start: 20100101, end: 20100101
  29. LYRICA [Suspect]
     Route: 065
     Dates: start: 20100801, end: 20100829
  30. LYRICA [Suspect]
     Route: 065
     Dates: start: 20100801, end: 20100829
  31. VALIUM [Concomitant]

REACTIONS (8)
  - ROAD TRAFFIC ACCIDENT [None]
  - BLOOD CHOLESTEROL INCREASED [None]
  - NEURALGIA [None]
  - RENAL IMPAIRMENT [None]
  - BACK DISORDER [None]
  - MENTAL IMPAIRMENT [None]
  - NEUROPATHY PERIPHERAL [None]
  - FIBROMYALGIA [None]
